FAERS Safety Report 18147577 (Version 1)
Quarter: 2020Q3

REPORT INFORMATION
  Report Type: Spontaneous
  Country: DE (occurrence: DE)
  Receive Date: 20200814
  Receipt Date: 20200814
  Transmission Date: 20201103
  Serious: Yes (Hospitalization)
  Sender: FDA-Public Use
  Company Number: DE-TEVA-2020-DE-1813609

PATIENT
  Age: 84 Year
  Sex: Female
  Weight: 83 kg

DRUGS (10)
  1. ACETYLSALICYLSAURE [Concomitant]
     Active Substance: ASPIRIN
     Dosage: 100 MILLIGRAM DAILY;  0?1?0?0
     Route: 048
  2. TORASEMID [Suspect]
     Active Substance: TORSEMIDE
     Dosage: 20 MILLIGRAM DAILY; 1?1?0?0
     Route: 048
  3. CARVEDILOL. [Concomitant]
     Active Substance: CARVEDILOL
     Dosage: 25 MILLIGRAM DAILY;  1?1?0?0
     Route: 048
  4. AMLODIPIN/CANDESARTAN [Suspect]
     Active Substance: AMLODIPINE\CANDESARTAN CILEXETIL
     Dosage: 2 DOSAGE FORMS DAILY; 10|16 MG, 1?0?1?0
     Route: 048
  5. GABAPENTIN. [Concomitant]
     Active Substance: GABAPENTIN
     Dosage: 100 MG, 1?0?0?2
     Route: 048
  6. FEBUXOSTAT. [Concomitant]
     Active Substance: FEBUXOSTAT
     Dosage: 80 MILLIGRAM DAILY; 1?0?0?0
     Route: 048
  7. AMITRIPTYLIN [Concomitant]
     Active Substance: AMITRIPTYLINE
     Dosage: .5 DOSAGE FORMS DAILY; 100 MG, 0?0?0.5?0
     Route: 048
  8. LEVOTHYROXIN?NATRIUM [Concomitant]
     Active Substance: LEVOTHYROXINE SODIUM
     Dosage: .125 MILLIGRAM DAILY; 1?0?0?0
     Route: 048
  9. MOXONIDIN [Concomitant]
     Active Substance: MOXONIDINE
     Dosage: .4 MILLIGRAM DAILY; 1?0?1?0
     Route: 048
  10. COLECALCIFEROL (VITAMIN D) [Concomitant]
     Dosage: 20000 IU (INTERNATIONAL UNIT) DAILY;  1?0?0?0
     Route: 048

REACTIONS (7)
  - Oedema peripheral [Unknown]
  - Renal impairment [Unknown]
  - Pain [Unknown]
  - Arthralgia [Unknown]
  - Pain in extremity [Unknown]
  - Dyspnoea [Unknown]
  - Electrolyte imbalance [Unknown]
